FAERS Safety Report 6704758-8 (Version None)
Quarter: 2010Q2

REPORT INFORMATION
  Report Type: 
  Country: None (occurrence: None)
  Receive Date: 20100430
  Receipt Date: 20100203
  Transmission Date: 20101027
  Serious: No
  Sender: FDA-Public Use
  Company Number: US-BAUSCH-2010BL000342

PATIENT
  Age: 60 Year
  Sex: Female
  Weight: 72 kg

DRUGS (7)
  1. ALREX [Suspect]
     Indication: EYE PRURITUS
     Route: 047
     Dates: start: 20100106, end: 20100106
  2. ALREX [Suspect]
     Indication: OCULAR HYPERAEMIA
     Route: 047
     Dates: start: 20100106, end: 20100106
  3. ALREX [Suspect]
     Route: 047
     Dates: start: 20100108, end: 20100108
  4. ALREX [Suspect]
     Route: 047
     Dates: start: 20100108, end: 20100108
  5. ALREX [Suspect]
     Route: 047
     Dates: start: 20100111, end: 20100111
  6. ALREX [Suspect]
     Route: 047
     Dates: start: 20100111, end: 20100111
  7. TEARS NATURALE FREE [Concomitant]
     Indication: DRY EYE

REACTIONS (3)
  - EYE IRRITATION [None]
  - EYE PAIN [None]
  - LACRIMATION INCREASED [None]
